FAERS Safety Report 9235079 (Version 2)
Quarter: 2013Q4

REPORT INFORMATION
  Report Type: Spontaneous
  Country: DK (occurrence: GB)
  Receive Date: 20130416
  Receipt Date: 20131014
  Transmission Date: 20140711
  Serious: Yes (Other)
  Sender: FDA-Public Use
  Company Number: GB-FRI-1000044250

PATIENT
  Age: 58 Year
  Sex: Female
  Weight: 104 kg

DRUGS (10)
  1. CITALOPRAM [Suspect]
     Indication: DEPRESSION
     Dosage: 10 MG
     Route: 048
     Dates: start: 20130301, end: 20130324
  2. KEPPRA [Suspect]
     Indication: EPILEPSY
     Dates: end: 201302
  3. KEPPRA [Suspect]
     Dosage: DOSE REDUCED
     Dates: start: 201302, end: 2013
  4. KEPPRA [Suspect]
     Dosage: DOSE INCREASED TO ORIGINAL LEVEL (UNSPECIFIED)
     Dates: start: 2013
  5. ATORVASTATIN [Concomitant]
  6. CARBAMAZEPINE [Concomitant]
  7. CYANOCOBALAMIN [Concomitant]
  8. LAMOTRIGINE [Concomitant]
  9. LEVOTHYROXINE [Concomitant]
  10. METFORMIN [Concomitant]

REACTIONS (8)
  - Epilepsy [Not Recovered/Not Resolved]
  - Epileptic aura [Unknown]
  - Abnormal dreams [Unknown]
  - Dizziness [Unknown]
  - Headache [Unknown]
  - Abdominal pain upper [Unknown]
  - Blood cholesterol increased [Unknown]
  - Thyroid function test abnormal [Unknown]
